FAERS Safety Report 4340527-4 (Version None)
Quarter: 2004Q2

REPORT INFORMATION
  Report Type: 
  Country: None (occurrence: None)
  Receive Date: 20040414
  Receipt Date: 20040402
  Transmission Date: 20050107
  Serious: Yes (Other)
  Sender: FDA-Public Use
  Company Number: UK071406

PATIENT
  Sex: Female

DRUGS (1)
  1. ARANESP [Suspect]
     Indication: RENAL FAILURE CHRONIC
     Dosage: IV
     Route: 042
     Dates: start: 20030117

REACTIONS (4)
  - ANAEMIA [None]
  - ENDOCARDITIS [None]
  - PANCYTOPENIA [None]
  - SPLENOMEGALY [None]
